FAERS Safety Report 12101403 (Version 1)
Quarter: 2016Q1

REPORT INFORMATION
  Report Type: Spontaneous
  Country: US (occurrence: US)
  Receive Date: 20160222
  Receipt Date: 20160222
  Transmission Date: 20160526
  Serious: Yes (Other)
  Sender: FDA-Public Use
  Company Number: US-BAYER-2016-031927

PATIENT
  Age: 78 Year
  Sex: Male
  Weight: 81.63 kg

DRUGS (3)
  1. CLARITIN [Concomitant]
     Active Substance: LORATADINE
     Dosage: UNK
  2. AFRIN ORIGINAL [Suspect]
     Active Substance: OXYMETAZOLINE HYDROCHLORIDE
     Indication: NASAL CONGESTION
     Dosage: 5-6 SPRAYS IN EACH NOSTRIL, 4 TO FIVE TIMES A DAY
     Route: 045
     Dates: start: 1976
  3. INSULIN [Concomitant]
     Active Substance: INSULIN NOS
     Dosage: UNK

REACTIONS (7)
  - Drug abuse [None]
  - Nasal obstruction [None]
  - Product use issue [None]
  - Drug dependence [None]
  - Dyspnoea [None]
  - Product use issue [None]
  - Nasal congestion [None]

NARRATIVE: CASE EVENT DATE: 1976
